FAERS Safety Report 6843084-3 (Version None)
Quarter: 2010Q3

REPORT INFORMATION
  Report Type: 
  Country: None (occurrence: None)
  Receive Date: 20100715
  Receipt Date: 20100706
  Transmission Date: 20110219
  Serious: Yes (Hospitalization)
  Sender: FDA-Public Use
  Company Number: US-BIOGENIDEC-2010BI015144

PATIENT
  Age: 58 Year
  Sex: Female
  Weight: 79 kg

DRUGS (8)
  1. TYSABRI [Suspect]
     Indication: MULTIPLE SCLEROSIS
     Route: 042
     Dates: start: 20090807
  2. TOPROL-XL [Concomitant]
     Indication: HYPERTENSION
  3. HYDROCHLORITHIAZIDE [Concomitant]
     Indication: HYPERTENSION
  4. ENALAPRIL MALEATE [Concomitant]
     Indication: INSOMNIA
  5. KLONOPIN [Concomitant]
     Indication: ANXIETY
  6. ABILIFY [Concomitant]
     Indication: PANIC ATTACK
  7. CYMBALTA [Concomitant]
     Indication: ANXIETY
  8. ELAVIL [Concomitant]
     Indication: INSOMNIA

REACTIONS (5)
  - ANXIETY [None]
  - HEADACHE [None]
  - HYPERTENSION [None]
  - INSOMNIA [None]
  - PANIC ATTACK [None]
